FAERS Safety Report 9626147 (Version 1)
Quarter: 2013Q4

REPORT INFORMATION
  Report Type: Spontaneous
  Country: US (occurrence: None)
  Receive Date: 20131015
  Receipt Date: 20131015
  Transmission Date: 20140711
  Serious: Yes (Life-Threatening, Hospitalization, Disabling, Other)
  Sender: FDA-Public Use
  Company Number: None

PATIENT
  Age: 56 Year
  Sex: Male
  Weight: 68.04 kg

DRUGS (2)
  1. LEVAQUIN 500MG ORTHO MCNEIL [Suspect]
     Indication: SALMONELLOSIS
     Dosage: 1 PILL
     Route: 048
     Dates: start: 20091031, end: 20101028
  2. LEVAQUIN 500MG ORTHO MCNEIL [Suspect]
     Indication: HELICOBACTER INFECTION
     Dosage: 1 PILL
     Route: 048
     Dates: start: 20091031, end: 20101028

REACTIONS (17)
  - Toxicity to various agents [None]
  - Polyneuropathy [None]
  - Neuropathy peripheral [None]
  - Demyelination [None]
  - Muscle atrophy [None]
  - Tendon disorder [None]
  - Connective tissue disorder [None]
  - Toxicity to various agents [None]
  - Toxic neuropathy [None]
  - Neuromuscular toxicity [None]
  - Myalgia [None]
  - Myositis [None]
  - Musculoskeletal chest pain [None]
  - Costochondritis [None]
  - Bone disorder [None]
  - Muscle rupture [None]
  - Immune system disorder [None]
